FAERS Safety Report 7392476 (Version 4)
Quarter: 2014Q2

REPORT INFORMATION
  Report Type: Spontaneous
  Country: US (occurrence: US)
  Receive Date: 20100519
  Receipt Date: 20140530
  Transmission Date: 20141212
  Serious: Yes (Hospitalization)
  Sender: FDA-Public Use
  Company Number: US-BAYER-201022420NA

PATIENT
  Age: 39 Year
  Sex: Female
  Weight: 126.8 kg

DRUGS (18)
  1. YAZ [Suspect]
     Indication: MENORRHAGIA
     Route: 048
     Dates: start: 200710, end: 200804
  2. YASMIN [Suspect]
     Indication: MENORRHAGIA
     Route: 048
     Dates: start: 200710, end: 200804
  3. DIOVAN HCT [Concomitant]
     Dosage: 320/25MG
     Route: 048
  4. TIZANIDINE HYDROCHLORIDE [Concomitant]
     Dosage: 4 MG, UNK
     Route: 048
  5. METFORMIN HCL [Concomitant]
     Dosage: 500 MG, UNK
     Route: 048
  6. LEXAPRO [Concomitant]
     Dosage: 20 MG, QD
     Route: 048
  7. CYCLOBENZAPRINE [Concomitant]
     Dosage: 10 MG, UNK
     Route: 048
  8. LYRICA [Concomitant]
     Dosage: 75 MG, UNK
     Route: 048
  9. PROTONIX [Concomitant]
     Dosage: 40 MG, QD
     Route: 048
  10. SIMVASTATIN [Concomitant]
     Dosage: 10 MG, UNK
     Route: 048
  11. ACETAMINOPHEN/SALICYLAMIDE/PHENYLTOLOXAMINE/CAFFEINE [Concomitant]
     Route: 048
  12. HYDROCODONE W/APAP [Concomitant]
     Dosage: 5-500
     Route: 048
  13. JANUMET [Concomitant]
     Dosage: UNK UNK, BID
     Route: 048
  14. PREMARIN [Concomitant]
     Route: 048
  15. LEVAQUIN [Concomitant]
     Route: 048
  16. FLUCONAZOLE [Concomitant]
     Dosage: 150 MG, UNK
     Route: 048
  17. ESTRADIOL [ESTRADIOL] [Concomitant]
     Dosage: 0.1 MG, UNK
     Dates: end: 20080429
  18. NABUMETONE [Concomitant]
     Dosage: 750 MG, UNK
     Route: 048

REACTIONS (1)
  - Ovarian vein thrombosis [Unknown]
